FAERS Safety Report 5305370-8 (Version None)
Quarter: 2007Q2

REPORT INFORMATION
  Report Type: 
  Country: None (occurrence: None)
  Receive Date: 20070416
  Receipt Date: 20070329
  Transmission Date: 20071010
  Serious: Yes (Other)
  Sender: FDA-Public Use
  Company Number: DSA_27896_2006

PATIENT
  Age: 61 Year
  Sex: Male

DRUGS (1)
  1. ENALAPRILAT [Suspect]

REACTIONS (6)
  - ERYTHEMA [None]
  - HYPERHIDROSIS [None]
  - HYPOTENSION [None]
  - NAUSEA [None]
  - NITRITOID REACTION [None]
  - TACHYCARDIA [None]
